FAERS Safety Report 4931541-6 (Version None)
Quarter: 2006Q1

REPORT INFORMATION
  Report Type: 
  Country: None (occurrence: None)
  Receive Date: 20060106
  Receipt Date: 20050818
  Transmission Date: 20060701
  Serious: No
  Sender: FDA-Public Use
  Company Number: 200511682BWH

PATIENT
  Age: 71 Year
  Sex: Male

DRUGS (4)
  1. LEVITRA [Suspect]
     Indication: ERECTILE DYSFUNCTION
     Dosage: 10 MG, BIW, ORAL
     Route: 048
     Dates: start: 20050801, end: 20050814
  2. VITAMINS [Concomitant]
  3. HERBAL LAXATIVE [Concomitant]
  4. ALEVE [Concomitant]

REACTIONS (1)
  - ERECTILE DYSFUNCTION [None]
